FAERS Safety Report 7573296-5 (Version None)
Quarter: 2011Q2

REPORT INFORMATION
  Report Type: 
  Country: None (occurrence: None)
  Receive Date: 20110627
  Receipt Date: 20110614
  Transmission Date: 20111010
  Serious: Yes (Other)
  Sender: FDA-Public Use
  Company Number: PHHY2010US89125

PATIENT
  Sex: Female

DRUGS (4)
  1. VITAMIN TAB [Concomitant]
     Dosage: UNK UKN, UNK
  2. RECLAST [Suspect]
     Dosage: 5 MG PER YEAR
     Route: 042
     Dates: start: 20101203
  3. FENTANYL [Concomitant]
     Dosage: UNK UKN, UNK
  4. TYLENOL-500 [Concomitant]
     Dosage: UNK UKN, UNK

REACTIONS (20)
  - JOINT SWELLING [None]
  - NECK PAIN [None]
  - MUSCULOSKELETAL STIFFNESS [None]
  - ARTHRITIS [None]
  - GLAUCOMA [None]
  - PAIN IN JAW [None]
  - GAIT DISTURBANCE [None]
  - JOINT STIFFNESS [None]
  - JAW DISORDER [None]
  - OEDEMA PERIPHERAL [None]
  - SOMNOLENCE [None]
  - MYALGIA [None]
  - INFLUENZA LIKE ILLNESS [None]
  - ARTHRALGIA [None]
  - MASTICATION DISORDER [None]
  - INTRAOCULAR PRESSURE INCREASED [None]
  - PAIN IN EXTREMITY [None]
  - TOOTHACHE [None]
  - PHOTOPHOBIA [None]
  - FLUID RETENTION [None]
